FAERS Safety Report 10208431 (Version 1)
Quarter: 2014Q2

REPORT INFORMATION
  Report Type: Spontaneous
  Country: US (occurrence: US)
  Receive Date: 20140530
  Receipt Date: 20140530
  Transmission Date: 20141212
  Serious: Yes (Other)
  Sender: FDA-Public Use
  Company Number: US-GLAXOSMITHKLINE-A1074201A

PATIENT
  Sex: Female

DRUGS (3)
  1. ADVAIR HFA [Suspect]
     Indication: PRODUCT USED FOR UNKNOWN INDICATION
  2. VENTOLIN [Suspect]
     Indication: HYPERSENSITIVITY
  3. VERAMYST [Suspect]
     Indication: PRODUCT USED FOR UNKNOWN INDICATION

REACTIONS (7)
  - Tumour excision [Unknown]
  - Vaginal haemorrhage [Unknown]
  - Uterine leiomyoma [Unknown]
  - Fatigue [Unknown]
  - Anaemia [Unknown]
  - Malaise [Unknown]
  - Energy increased [Unknown]
